FAERS Safety Report 18321854 (Version 1)
Quarter: 2020Q3

REPORT INFORMATION
  Report Type: Report from Study
  Country: None (occurrence: US)
  Receive Date: 20200929
  Receipt Date: 20200929
  Transmission Date: 20201103
  Serious: Yes (Hospitalization)
  Sender: FDA-Public Use
  Company Number: US-ABBVIE-20K-163-3406052-00

PATIENT
  Age: 85 Year
  Sex: Female

DRUGS (2)
  1. HUMIRA [Suspect]
     Active Substance: ADALIMUMAB
     Indication: RHEUMATOID ARTHRITIS
     Route: 058
  2. HUMIRA [Suspect]
     Active Substance: ADALIMUMAB
     Indication: RHEUMATOID ARTHRITIS
     Route: 058

REACTIONS (10)
  - Hyponatraemic syndrome [Recovering/Resolving]
  - Therapeutic product effect incomplete [Unknown]
  - Atrial fibrillation [Unknown]
  - Myalgia [Unknown]
  - Back disorder [Unknown]
  - Arthropathy [Unknown]
  - Rheumatoid arthritis [Unknown]
  - Pain [Unknown]
  - Urinary tract infection [Unknown]
  - Memory impairment [Unknown]

NARRATIVE: CASE EVENT DATE: 202006
